FAERS Safety Report 6555497-8 (Version None)
Quarter: 2010Q1

REPORT INFORMATION
  Report Type: 
  Country: None (occurrence: None)
  Receive Date: 20100128
  Receipt Date: 20100115
  Transmission Date: 20100710
  Serious: Yes (Other)
  Sender: FDA-Public Use
  Company Number: GB-ROCHE-645674

PATIENT
  Age: 35 Year
  Sex: Male

DRUGS (1)
  1. TAMIFLU [Suspect]
     Indication: H1N1 INFLUENZA
     Dosage: MEDICATION FROM: COMMUNITY PHARMACY
     Route: 065
     Dates: start: 20090717, end: 20090722

REACTIONS (1)
  - DERMATITIS BULLOUS [None]
